FAERS Safety Report 7654434-2 (Version None)
Quarter: 2011Q3

REPORT INFORMATION
  Report Type: 
  Country: None (occurrence: None)
  Receive Date: 20110803
  Receipt Date: 20110624
  Transmission Date: 20111222
  Serious: Yes (Hospitalization)
  Sender: FDA-Public Use
  Company Number: US-CELGENEUS-163-21880-11063314

PATIENT
  Sex: Male
  Weight: 99 kg

DRUGS (13)
  1. REVLIMID [Suspect]
     Dosage: 50 MILLIGRAM
     Route: 048
     Dates: start: 20110525
  2. LIPITOR [Concomitant]
     Dosage: 80 MILLIGRAM
     Route: 048
  3. TYLENOL-500 [Concomitant]
     Dosage: 650 MILLIGRAM
     Route: 048
  4. PLATELETS [Concomitant]
     Indication: THROMBOCYTOPENIA
     Route: 041
     Dates: start: 20110601, end: 20110601
  5. METOPROLOL TARTRATE [Concomitant]
     Dosage: 50 MILLIGRAM
     Route: 048
  6. EFFEXOR XR [Concomitant]
     Dosage: 37.5 MILLIGRAM
     Route: 048
  7. METFORMIN HCL [Concomitant]
     Dosage: 500MG QAM AND 1000MG QPM
     Route: 048
  8. VIDAZA [Suspect]
     Dosage: 50 MILLIGRAM/SQ. METER
     Route: 065
     Dates: start: 20110525, end: 20110529
  9. GLIPIZIDE [Concomitant]
     Dosage: 5 MILLIGRAM
     Route: 048
  10. LEVOTHYROXINE SODIUM [Concomitant]
     Dosage: 150 MICROGRAM
     Route: 048
  11. LISINOPRIL AND HYDROCHLOROTHIAZIDE [Concomitant]
     Dosage: 20-12.5MG
     Route: 048
  12. VALTREX [Concomitant]
     Dosage: 500 MILLIGRAM
     Route: 048
  13. AMBIEN [Concomitant]
     Dosage: 10 MILLIGRAM
     Route: 048

REACTIONS (3)
  - PYREXIA [None]
  - OEDEMA PERIPHERAL [None]
  - INFLAMMATION [None]
